FAERS Safety Report 12136615 (Version 2)
Quarter: 2016Q2

REPORT INFORMATION
  Report Type: Spontaneous
  Country: US (occurrence: US)
  Receive Date: 20160302
  Receipt Date: 20160427
  Transmission Date: 20160815
  Serious: Yes (Other)
  Sender: FDA-Public Use
  Company Number: US-TEVA-639651ACC

PATIENT
  Sex: Female
  Weight: 59.02 kg

DRUGS (3)
  1. PARAGARD T 380A [Suspect]
     Active Substance: COPPER
     Route: 065
  2. BABY ASPRIN [Concomitant]
     Active Substance: ASPIRIN
     Indication: COAGULOPATHY
  3. PARAGARD T 380A [Suspect]
     Active Substance: COPPER
     Indication: CONTRACEPTION
     Dates: start: 20140912, end: 20160125

REACTIONS (4)
  - Vaginal haemorrhage [Recovered/Resolved]
  - Ovarian cyst ruptured [Unknown]
  - Device dislocation [Recovered/Resolved]
  - Ovarian cyst [Unknown]
